FAERS Safety Report 6888711-X (Version None)
Quarter: 2010Q3

REPORT INFORMATION
  Report Type: 
  Country: None (occurrence: None)
  Receive Date: 20100730
  Receipt Date: 20100723
  Transmission Date: 20110219
  Serious: Yes (Other)
  Sender: FDA-Public Use
  Company Number: US-AMGEN-QUU426585

PATIENT
  Sex: Female

DRUGS (2)
  1. ENBREL [Suspect]
     Indication: RHEUMATOID ARTHRITIS
     Route: 058
     Dates: start: 20091102, end: 20100526
  2. METHOTREXATE [Concomitant]
     Dates: start: 20090901

REACTIONS (3)
  - ARTHRALGIA [None]
  - BREAST CANCER [None]
  - DRUG EFFECT DELAYED [None]
